FAERS Safety Report 16993768 (Version 1)
Quarter: 2019Q4

REPORT INFORMATION
  Report Type: Spontaneous
  Country: US (occurrence: US)
  Receive Date: 20191105
  Receipt Date: 20191105
  Transmission Date: 20200122
  Serious: No
  Sender: FDA-Public Use
  Company Number: US-BAYER-2019-197493

PATIENT
  Age: 13 Year
  Sex: Female
  Weight: 48 kg

DRUGS (4)
  1. DIPHENHYDRAMINE HYDROCHLORIDE. [Concomitant]
     Active Substance: DIPHENHYDRAMINE HYDROCHLORIDE
     Indication: ARTHROPOD STING
  2. CLARITIN [Suspect]
     Active Substance: LORATADINE
     Indication: HYPERSENSITIVITY
     Dosage: 4 DF, QD
     Route: 048
     Dates: start: 20191031, end: 20191031
  3. CLARITIN [Suspect]
     Active Substance: LORATADINE
     Indication: NASOPHARYNGITIS
  4. CLARITIN [Suspect]
     Active Substance: LORATADINE
     Indication: ARTHROPOD STING

REACTIONS (2)
  - Expired product administered [None]
  - Product use in unapproved indication [Recovered/Resolved]

NARRATIVE: CASE EVENT DATE: 20191031
